FAERS Safety Report 4453520-8 (Version None)
Quarter: 2004Q3

REPORT INFORMATION
  Report Type: 
  Country: None (occurrence: None)
  Receive Date: 20040920
  Receipt Date: 20040909
  Transmission Date: 20050211
  Serious: Yes (Death, Hospitalization, Other)
  Sender: FDA-Public Use
  Company Number: NSADSS2001019236

PATIENT
  Age: 70 Year
  Sex: Female
  Weight: 87.09 kg

DRUGS (4)
  1. REMICADE [Suspect]
     Indication: RHEUMATOID ARTHRITIS
     Dosage: RECEIVED 3 DOSES (DATES UNKNOWN)
     Route: 041
     Dates: start: 20010301
  2. IMURAN [Concomitant]
  3. MOTRIN [Concomitant]
  4. PROTONEX [Concomitant]

REACTIONS (17)
  - BAROTRAUMA [None]
  - BRONCHIECTASIS [None]
  - CHILLS [None]
  - FATIGUE [None]
  - HYPERHIDROSIS [None]
  - HYPOXIA [None]
  - INTERSTITIAL LUNG DISEASE [None]
  - LEUKOCYTOSIS [None]
  - LUNG INFECTION PSEUDOMONAL [None]
  - PNEUMOMEDIASTINUM [None]
  - PNEUMONIA HERPES VIRAL [None]
  - PULMONARY HAEMORRHAGE [None]
  - PULMONARY NECROSIS [None]
  - PYREXIA [None]
  - RESPIRATORY FAILURE [None]
  - RESPIRATORY MONILIASIS [None]
  - SUBCUTANEOUS EMPHYSEMA [None]
